FAERS Safety Report 9568675 (Version 2)
Quarter: 2013Q3

REPORT INFORMATION
  Report Type: Spontaneous
  Country: US (occurrence: US)
  Receive Date: 20130930
  Receipt Date: 20130930
  Transmission Date: 20140515
  Serious: No
  Sender: FDA-Public Use
  Company Number: US-AMGEN-USASP2013054729

PATIENT
  Age: 45 Year
  Sex: Female
  Weight: 80.73 kg

DRUGS (4)
  1. ENBREL [Suspect]
     Indication: ANKYLOSING SPONDYLITIS
     Dosage: 50 MG, QWK
     Route: 058
     Dates: start: 201306
  2. MOTRIN [Concomitant]
     Indication: PAIN
     Dosage: 800 MG, BID
     Route: 048
  3. SOMA [Concomitant]
     Indication: MUSCLE SPASMS
     Dosage: 300 MG, BID
     Route: 048
  4. NORCO [Concomitant]
     Indication: PAIN
     Dosage: UNK UNK, TID
     Route: 048

REACTIONS (2)
  - Swelling face [Not Recovered/Not Resolved]
  - Rash [Recovered/Resolved]
